FAERS Safety Report 15569323 (Version 1)
Quarter: 2018Q4

REPORT INFORMATION
  Report Type: Spontaneous
  Country: US (occurrence: US)
  Receive Date: 20181031
  Receipt Date: 20181031
  Transmission Date: 20190205
  Serious: No
  Sender: FDA-Public Use
  Company Number: US-APOTEX-2018AP018018

PATIENT
  Sex: Female

DRUGS (1)
  1. FLUTICASONE PROPIONATE. [Suspect]
     Active Substance: FLUTICASONE PROPIONATE
     Indication: SINUSITIS
     Dosage: 2 SPRAY IN EACH NOSITRIL DAILY
     Route: 045

REACTIONS (4)
  - Blood urine present [Unknown]
  - Mouth haemorrhage [Unknown]
  - Oral pain [Unknown]
  - Oral discomfort [Unknown]
